FAERS Safety Report 23579189 (Version 1)
Quarter: 2024Q1

REPORT INFORMATION
  Report Type: Report from Study
  Country: US (occurrence: US)
  Receive Date: 20240229
  Receipt Date: 20240229
  Transmission Date: 20240409
  Serious: Yes (Other)
  Sender: FDA-Public Use
  Company Number: US-AUROBINDO-AUR-APL-2024-009434

PATIENT
  Age: 15 Year
  Sex: Female

DRUGS (3)
  1. ARIPIPRAZOLE [Suspect]
     Active Substance: ARIPIPRAZOLE
     Indication: Suicidal ideation
     Dosage: 10 MILLIGRAM
     Route: 048
  2. CLONIDINE [Suspect]
     Active Substance: CLONIDINE
     Indication: Suicidal ideation
     Dosage: 0.1 MILLIGRAM, ONCE A DAY
     Route: 065
  3. MIRTAZAPINE [Suspect]
     Active Substance: MIRTAZAPINE
     Indication: Suicidal ideation
     Dosage: 7.5 MILLIGRAM, QHS
     Route: 065

REACTIONS (2)
  - Treatment noncompliance [Unknown]
  - Akathisia [Unknown]
